FAERS Safety Report 12435150 (Version 2)
Quarter: 2016Q4

REPORT INFORMATION
  Report Type: Spontaneous
  Country: US (occurrence: US)
  Receive Date: 20160603
  Receipt Date: 20161212
  Transmission Date: 20170207
  Serious: No
  Sender: FDA-Public Use
  Company Number: US-ROCHE-1704951

PATIENT
  Age: 35 Year
  Sex: Female
  Weight: 81.72 kg

DRUGS (2)
  1. METHOTREXATE. [Concomitant]
     Active Substance: METHOTREXATE
     Route: 048
  2. ACTEMRA [Suspect]
     Active Substance: TOCILIZUMAB
     Indication: RHEUMATOID ARTHRITIS
     Route: 058
     Dates: start: 20150609

REACTIONS (5)
  - Rash [Unknown]
  - Skin ulcer [Unknown]
  - Rash erythematous [Unknown]
  - Gastritis [Unknown]
  - Headache [Unknown]

NARRATIVE: CASE EVENT DATE: 20160120
